FAERS Safety Report 14571166 (Version 1)
Quarter: 2018Q1

REPORT INFORMATION
  Report Type: Report from Study
  Country: US (occurrence: US)
  Receive Date: 20180226
  Receipt Date: 20180226
  Transmission Date: 20180509
  Serious: Yes (Other)
  Sender: FDA-Public Use
  Company Number: PHEH2018US006177

PATIENT
  Sex: Female

DRUGS (1)
  1. ENTRESTO [Suspect]
     Active Substance: SACUBITRIL\VALSARTAN
     Indication: PRODUCT USED FOR UNKNOWN INDICATION
     Route: 048

REACTIONS (7)
  - Cough [Unknown]
  - Diabetes mellitus [Unknown]
  - Hypertension [Unknown]
  - Fatigue [Unknown]
  - Peripheral swelling [Unknown]
  - Amnesia [Unknown]
  - Drug ineffective [Unknown]
